FAERS Safety Report 8863118 (Version 1)
Quarter: 2012Q4

REPORT INFORMATION
  Report Type: 
  Country: NL (occurrence: NL)
  Receive Date: 20121026
  Receipt Date: 20121026
  Transmission Date: 20130627
  Serious: Yes (Death, Other)
  Sender: FDA-Public Use
  Company Number: NL-ROCHE-1147197

PATIENT
  Age: 64 Year
  Sex: Female
  Weight: 90 kg

DRUGS (9)
  1. XOLAIR [Suspect]
     Indication: ASTHMA
     Route: 058
     Dates: start: 20120704
  2. XOLAIR [Suspect]
     Route: 058
     Dates: start: 20120718
  3. XOLAIR [Suspect]
     Route: 058
     Dates: start: 20120801
  4. PREDNISONE [Concomitant]
     Route: 065
  5. PREDNISONE [Concomitant]
     Route: 065
  6. FORADIL [Concomitant]
     Route: 065
  7. MONTELUKAST [Concomitant]
     Route: 065
  8. ALVESCO [Concomitant]
     Route: 065
  9. ALVESCO [Concomitant]
     Route: 065

REACTIONS (2)
  - Myocardial infarction [Fatal]
  - Nervous system disorder [Unknown]
